FAERS Safety Report 15059025 (Version 1)
Quarter: 2018Q3

REPORT INFORMATION
  Report Type: Spontaneous
  Country: US (occurrence: US)
  Receive Date: 20180625
  Receipt Date: 20180625
  Transmission Date: 20181010
  Serious: No
  Sender: FDA-Public Use
  Company Number: US-MYLANLABS-2018M1037627

PATIENT
  Sex: Female

DRUGS (1)
  1. HYDROCHLOROTHIAZIDE/TRIAMTERENE [Suspect]
     Active Substance: HYDROCHLOROTHIAZIDE\TRIAMTERENE
     Indication: HYPERTENSION
     Dosage: UNK
     Route: 048
     Dates: start: 20180219

REACTIONS (11)
  - Dysgeusia [Unknown]
  - Hypersensitivity [Recovered/Resolved]
  - Product physical issue [Unknown]
  - Wrong technique in product usage process [Unknown]
  - Tongue discomfort [None]
  - Product coating issue [None]
  - Paraesthesia oral [Recovered/Resolved]
  - Product physical issue [None]
  - Tongue discolouration [None]
  - Tongue discolouration [Unknown]
  - Tongue disorder [Recovered/Resolved]
